FAERS Safety Report 7722535-6 (Version None)
Quarter: 2011Q3

REPORT INFORMATION
  Report Type: 
  Country: None (occurrence: None)
  Receive Date: 20110831
  Receipt Date: 20110824
  Transmission Date: 20111222
  Serious: Yes (Other)
  Sender: FDA-Public Use
  Company Number: PHHY2011US67960

PATIENT
  Sex: Male

DRUGS (2)
  1. EXJADE [Suspect]
     Dosage: 2000 MG, QD
     Route: 048
     Dates: end: 20110801
  2. WHOLE BLOOD [Concomitant]
     Dosage: UNK UKN, UNK

REACTIONS (3)
  - HEADACHE [None]
  - DIARRHOEA [None]
  - BLOOD PRESSURE DECREASED [None]
